FAERS Safety Report 4662768-9 (Version None)
Quarter: 2005Q2

REPORT INFORMATION
  Report Type: 
  Country: None (occurrence: None)
  Receive Date: 20050512
  Receipt Date: 20050422
  Transmission Date: 20051028
  Serious: Yes (Hospitalization)
  Sender: FDA-Public Use
  Company Number: JP_050305970

PATIENT
  Age: 73 Year
  Sex: Male
  Weight: 57 kg

DRUGS (12)
  1. GEMZAR [Suspect]
     Indication: PANCREATIC CARCINOMA
     Dosage: 1600 MG OTHER
     Route: 050
     Dates: start: 20040817, end: 20050315
  2. FOIPAN (CAMOSTAT MESILATE) [Concomitant]
  3. BERIZYM [Concomitant]
  4. BIOFERMIN [Concomitant]
  5. SCOPOLIA EXTRACT [Concomitant]
  6. FAMOTIDINE [Concomitant]
  7. LOPERAMIDE HCL [Concomitant]
  8. HALCION [Concomitant]
  9. NAIXAN (NAPROXEN SODIUM) [Concomitant]
  10. BASEN (VOGLIBOSE) [Concomitant]
  11. DECADRON [Concomitant]
  12. KYTRIL [Concomitant]

REACTIONS (5)
  - BLOOD CREATININE INCREASED [None]
  - C-REACTIVE PROTEIN INCREASED [None]
  - CAPILLARY LEAK SYNDROME [None]
  - HAEMATOCRIT DECREASED [None]
  - HAEMOGLOBIN DECREASED [None]
